FAERS Safety Report 4322861-7 (Version None)
Quarter: 2004Q1

REPORT INFORMATION
  Report Type: 
  Country: None (occurrence: None)
  Receive Date: 20040322
  Receipt Date: 20040113
  Transmission Date: 20041129
  Serious: No
  Sender: FDA-Public Use
  Company Number: SU-2004-002052

PATIENT
  Age: 80 Year
  Sex: Female
  Weight: 49.8957 kg

DRUGS (5)
  1. BENICAR HCT [Suspect]
     Indication: HYPERTENSION
     Dosage: 20.125 MG QD PO
     Route: 048
     Dates: start: 20031023, end: 20031112
  2. HYZAAR [Concomitant]
  3. EVISTA [Concomitant]
  4. ZOLOFT [Concomitant]
  5. MULTIVITAMIN [Concomitant]

REACTIONS (2)
  - DIZZINESS [None]
  - NAUSEA [None]
